FAERS Safety Report 9173176 (Version 1)
Quarter: 2013Q1

REPORT INFORMATION
  Report Type: Spontaneous
  Country: JP (occurrence: JP)
  Receive Date: 20130320
  Receipt Date: 20130320
  Transmission Date: 20140127
  Serious: No
  Sender: FDA-Public Use
  Company Number: JP-JNJFOC-20130307180

PATIENT
  Sex: 0

DRUGS (1)
  1. DUROTEP MT [Suspect]
     Indication: CANCER PAIN
     Dosage: PRESCRIBED FENTANYL(MATRIX PATCH)12.5UG/HR WITH HALVING FENTANYL(MATRIX PATCH)25UG/HR
     Route: 062

REACTIONS (2)
  - Drug prescribing error [Unknown]
  - Drug prescribing error [Unknown]
